FAERS Safety Report 17761393 (Version 1)
Quarter: 2020Q2

REPORT INFORMATION
  Report Type: Spontaneous
  Country: ES (occurrence: ES)
  Receive Date: 20200508
  Receipt Date: 20200508
  Transmission Date: 20200714
  Serious: Yes (Hospitalization)
  Sender: FDA-Public Use
  Company Number: ES-MYLANLABS-2020M1045021

PATIENT
  Age: 70 Year
  Sex: Male

DRUGS (4)
  1. LORAZEPAM. [Suspect]
     Active Substance: LORAZEPAM
     Indication: PRODUCT USED FOR UNKNOWN INDICATION
     Dosage: 1 MILLIGRAM, UNK (1 MG NOCHE)
     Route: 048
     Dates: start: 20190423, end: 20191127
  2. CITALOPRAM [Suspect]
     Active Substance: CITALOPRAM HYDROBROMIDE
     Indication: PRODUCT USED FOR UNKNOWN INDICATION
     Dosage: (20 MG DIA)
     Route: 048
     Dates: start: 20190226, end: 20191227
  3. BALZAK PLUS [Suspect]
     Active Substance: AMLODIPINE BESYLATE\HYDROCHLOROTHIAZIDE\OLMESARTAN MEDOXOMIL
     Indication: HYPERTENSION
     Dosage: UNK
     Route: 048
     Dates: start: 20150324, end: 20191220
  4. RIVOTRIL [Suspect]
     Active Substance: CLONAZEPAM
     Indication: PRODUCT USED FOR UNKNOWN INDICATION
     Dosage: 0.5 MILLIGRAM, QD (0-0-1)
     Route: 048
     Dates: start: 20191128, end: 20191204

REACTIONS (2)
  - Renal tubular necrosis [Recovered/Resolved with Sequelae]
  - Confusional state [Recovered/Resolved]

NARRATIVE: CASE EVENT DATE: 20191127
